FAERS Safety Report 5796913-9 (Version None)
Quarter: 2008Q3

REPORT INFORMATION
  Report Type: 
  Country: None (occurrence: None)
  Receive Date: 20080701
  Receipt Date: 20080620
  Transmission Date: 20090109
  Serious: Yes (Other)
  Sender: FDA-Public Use
  Company Number: AU-SANOFI-SYNTHELABO-A01200806635

PATIENT
  Sex: Male

DRUGS (9)
  1. SERETIDE [Concomitant]
     Indication: ASTHMA
     Route: 055
  2. PREDNISONE [Concomitant]
     Indication: RHEUMATOID ARTHRITIS
     Route: 048
     Dates: start: 20080226, end: 20080305
  3. PREDNISONE [Concomitant]
     Route: 048
     Dates: start: 20080316, end: 20080328
  4. FELODUR [Concomitant]
     Route: 048
  5. ALBUTEROL [Concomitant]
     Indication: ASTHMA
     Dosage: UNK
     Route: 065
  6. PLAQUENIL [Suspect]
     Indication: RHEUMATOID ARTHRITIS
     Dosage: 2 UNITS IN THE MORNING
     Route: 048
     Dates: start: 20080126, end: 20080209
  7. PLAQUENIL [Suspect]
     Dosage: ONE UNIT EVERY SECOND DAY
     Route: 048
     Dates: start: 20080222, end: 20080228
  8. PLAQUENIL [Suspect]
     Dosage: 1 UNIT
     Route: 048
     Dates: start: 20080301, end: 20080309
  9. PLAQUENIL [Suspect]
     Dosage: 1 UNIT IN THE MORNING AND ONE IN THE EVENING
     Route: 048
     Dates: start: 20080310, end: 20080605

REACTIONS (4)
  - ASTHMA [None]
  - DRY MOUTH [None]
  - OROPHARYNGEAL PAIN [None]
  - TONGUE ULCERATION [None]
